FAERS Safety Report 4824655-2 (Version None)
Quarter: 2005Q4

REPORT INFORMATION
  Report Type: 
  Country: None (occurrence: None)
  Receive Date: 20051110
  Receipt Date: 20051029
  Transmission Date: 20060501
  Serious: Yes (Hospitalization, Other)
  Sender: FDA-Public Use
  Company Number: US-JNJFOC-20051100317

PATIENT
  Sex: Female
  Weight: 74.39 kg

DRUGS (10)
  1. REMICADE [Suspect]
     Route: 042
  2. REMICADE [Suspect]
     Indication: CROHN'S DISEASE
     Route: 042
  3. PREDNISONE [Concomitant]
     Indication: CROHN'S DISEASE
  4. ACTOS [Concomitant]
     Indication: DIABETES MELLITUS
  5. GLUCOPHAGE [Concomitant]
     Indication: DIABETES MELLITUS
  6. GLUCOTROL XL [Concomitant]
     Indication: DIABETES MELLITUS
  7. HUMULIN 70/30 [Concomitant]
  8. HUMULIN 70/30 [Concomitant]
     Indication: DIABETES MELLITUS
  9. ACCUPRIL [Concomitant]
     Indication: HYPERTENSION
  10. ZOLOFT [Concomitant]
     Indication: DEPRESSION

REACTIONS (11)
  - ANOREXIA [None]
  - ASTHENIA [None]
  - BLOOD GLUCOSE INCREASED [None]
  - DEHYDRATION [None]
  - FATIGUE [None]
  - HYPERSENSITIVITY [None]
  - PAIN IN EXTREMITY [None]
  - PRURITUS [None]
  - RASH [None]
  - RENAL FAILURE [None]
  - THINKING ABNORMAL [None]
